FAERS Safety Report 14944564 (Version 6)
Quarter: 2019Q2

REPORT INFORMATION
  Report Type: Report from Study
  Country: None (occurrence: NL)
  Receive Date: 20180529
  Receipt Date: 20190524
  Transmission Date: 20190711
  Serious: Yes (Hospitalization, Other)
  Sender: FDA-Public Use
  Company Number: NL-ABBVIE-18K-114-2231839-00

PATIENT
  Age: 69 Year
  Sex: Female
  Weight: 80 kg

DRUGS (12)
  1. BISACODYL. [Concomitant]
     Active Substance: BISACODYL
     Indication: ABNORMAL FAECES
  2. FOLIC ACID. [Concomitant]
     Active Substance: FOLIC ACID
     Indication: PRODUCT USED FOR UNKNOWN INDICATION
  3. TRIMETHOPRIM. [Concomitant]
     Active Substance: TRIMETHOPRIM
     Indication: PRODUCT USED FOR UNKNOWN INDICATION
  4. DUODOPA [Suspect]
     Active Substance: CARBIDOPA\LEVODOPA
     Dosage: MD10.5 ML; CD 2.8 ML/HR; ED 1.5 ML
     Route: 050
  5. FURABID [Concomitant]
     Active Substance: NITROFURANTOIN
     Indication: PRODUCT USED FOR UNKNOWN INDICATION
  6. CLOZAPINE. [Concomitant]
     Active Substance: CLOZAPINE
     Indication: PRODUCT USED FOR UNKNOWN INDICATION
  7. DUODOPA [Suspect]
     Active Substance: CARBIDOPA\LEVODOPA
     Indication: PARKINSON^S DISEASE
     Dosage: MORNING DOSE: 10.5, CONTINUOUS DOSE:2.5, EXTRA DOSE: 1.0
     Route: 050
     Dates: start: 20180108, end: 201801
  8. DUODOPA [Suspect]
     Active Substance: CARBIDOPA\LEVODOPA
     Dosage: MORNING DOSE: 10.5, CONTINUOUS DOSE:2.5, EXTRA DOSE: 1.5
     Route: 050
     Dates: start: 201801
  9. DUODOPA [Suspect]
     Active Substance: CARBIDOPA\LEVODOPA
     Dosage: CD 3.0
     Route: 050
  10. MOVICOLON [Concomitant]
     Active Substance: POLYETHYLENE GLYCOL 3350\POTASSIUM CHLORIDE\SODIUM BICARBONATE\SODIUM CHLORIDE
     Indication: ABNORMAL FAECES
  11. MACROGOL [Concomitant]
     Active Substance: POLYETHYLENE GLYCOLS
     Indication: PRODUCT USED FOR UNKNOWN INDICATION
  12. CHOLECALCIFEROL [Concomitant]
     Active Substance: CHOLECALCIFEROL
     Indication: PRODUCT USED FOR UNKNOWN INDICATION

REACTIONS (27)
  - Therapeutic product effect delayed [Not Recovered/Not Resolved]
  - Arthralgia [Recovering/Resolving]
  - Blood pressure decreased [Unknown]
  - Constipation [Recovered/Resolved]
  - Gait disturbance [Unknown]
  - Weight decreased [Not Recovered/Not Resolved]
  - Musculoskeletal disorder [Not Recovered/Not Resolved]
  - Respiratory tract infection [Recovering/Resolving]
  - Syncope [Not Recovered/Not Resolved]
  - Pain in extremity [Recovering/Resolving]
  - Urinary tract infection [Not Recovered/Not Resolved]
  - Unresponsive to stimuli [Not Recovered/Not Resolved]
  - Cough [Recovering/Resolving]
  - Memory impairment [Not Recovered/Not Resolved]
  - Pain [Recovering/Resolving]
  - Abnormal dreams [Not Recovered/Not Resolved]
  - On and off phenomenon [Recovering/Resolving]
  - Hallucination [Recovered/Resolved]
  - Bradykinesia [Not Recovered/Not Resolved]
  - Hypotension [Not Recovered/Not Resolved]
  - Loss of consciousness [Unknown]
  - Mobility decreased [Not Recovered/Not Resolved]
  - Dyskinesia [Not Recovered/Not Resolved]
  - Hallucination [Not Recovered/Not Resolved]
  - Cognitive disorder [Not Recovered/Not Resolved]
  - Freezing phenomenon [Not Recovered/Not Resolved]
  - Parkinsonian gait [Unknown]

NARRATIVE: CASE EVENT DATE: 2018
